FAERS Safety Report 7395450-8 (Version None)
Quarter: 2011Q1

REPORT INFORMATION
  Report Type: 
  Country: None (occurrence: None)
  Receive Date: 20110331
  Receipt Date: 20110331
  Transmission Date: 20110831
  Serious: Yes (Life-Threatening, Hospitalization)
  Sender: FDA-Public Use
  Company Number: None

PATIENT
  Age: 73 Year
  Sex: Male
  Weight: 95.2554 kg

DRUGS (2)
  1. ZOCOR [Suspect]
     Indication: CARDIAC DISORDER
     Dates: start: 20090718, end: 20110322
  2. KETOCONAZOLE [Suspect]
     Indication: PROSTATE CANCER
     Dates: start: 20110218, end: 20110322

REACTIONS (2)
  - RHABDOMYOLYSIS [None]
  - ASTHENIA [None]
